FAERS Safety Report 4539309-X (Version None)
Quarter: 2004Q4

REPORT INFORMATION
  Report Type: 
  Country: None (occurrence: None)
  Receive Date: 20041223
  Receipt Date: 20041209
  Transmission Date: 20050328
  Serious: Yes (Death, Life-Threatening)
  Sender: FDA-Public Use
  Company Number: 2004000904

PATIENT
  Sex: Male

DRUGS (8)
  1. TARCEVA [Suspect]
     Indication: METASTATIC SQUAMOUS CELL CARCINOMA
     Dosage: 150 MG (QD), ORAL
     Route: 048
     Dates: start: 20041207, end: 20041208
  2. HYDROMORPHONE HYDROCHLORIDE [Concomitant]
  3. BISACODYL [Concomitant]
  4. SENOKOT [Concomitant]
  5. PANTOPRAZOLE SODIUM [Concomitant]
  6. MEGESTROL ACETATE [Concomitant]
  7. METOCLOPRAMIDE [Concomitant]
  8. ONDANSETRON HCL [Concomitant]

REACTIONS (5)
  - ATRIAL FLUTTER [None]
  - ATRIAL TACHYCARDIA [None]
  - ATRIOVENTRICULAR BLOCK COMPLETE [None]
  - DRUG INEFFECTIVE [None]
  - TACHYCARDIA [None]
